FAERS Safety Report 6656261-1 (Version None)
Quarter: 2010Q1

REPORT INFORMATION
  Report Type: 
  Country: None (occurrence: None)
  Receive Date: 20100317
  Receipt Date: 20091211
  Transmission Date: 20100710
  Serious: No
  Sender: FDA-Public Use
  Company Number: DSA_42174_2009

PATIENT
  Sex: Female

DRUGS (20)
  1. XENAZINE [Suspect]
     Indication: HUNTINGTON'S CHOREA
     Dosage: (25 MG TID ORAL)
     Route: 048
     Dates: start: 20090403
  2. YAZ [Concomitant]
  3. NEXIUM [Concomitant]
  4. MIRTAZAPINE [Concomitant]
  5. ATENOL [Concomitant]
  6. HYDROXYCHLOROQUINE SULFATE [Concomitant]
  7. CYCLOBENZAPRINE [Concomitant]
  8. DICYCLOMINE HCL [Concomitant]
  9. ZOLPIDEM TARTRATE [Concomitant]
  10. MORPHINE SULFATE [Concomitant]
  11. ACETAMINOPHEN AND HYDROCODONE BITARTRATE [Concomitant]
  12. HUMIRA [Concomitant]
  13. FLECTOR [Concomitant]
  14. CELEBREX [Concomitant]
  15. VOLTAREN [Concomitant]
  16. HYDROXYZINE [Concomitant]
  17. BACITRACIN W/POLYMYXIN B [Concomitant]
  18. NASACORT AQ [Concomitant]
  19. XYZAL [Concomitant]
  20. SINGULAIR [Concomitant]

REACTIONS (4)
  - BALANCE DISORDER [None]
  - MUSCLE TWITCHING [None]
  - NASOPHARYNGITIS [None]
  - TARDIVE DYSKINESIA [None]
